FAERS Safety Report 16905495 (Version 3)
Quarter: 2021Q2

REPORT INFORMATION
  Report Type: Report from Study
  Country: CA (occurrence: CA)
  Receive Date: 20191010
  Receipt Date: 20210606
  Transmission Date: 20210716
  Serious: Yes (Hospitalization, Disabling, Other)
  Sender: FDA-Public Use
  Company Number: CA-JNJFOC-20191002951

PATIENT
  Age: 67 Year
  Sex: Female

DRUGS (4)
  1. VENLAFAXINE XR [Concomitant]
     Active Substance: VENLAFAXINE HYDROCHLORIDE
  2. SIMPONI [Suspect]
     Active Substance: GOLIMUMAB
     Indication: RHEUMATOID ARTHRITIS
     Route: 058
     Dates: start: 20190311, end: 20190911
  3. BISOPROLOL [Concomitant]
     Active Substance: BISOPROLOL
  4. RABEPRAZOLE [Concomitant]
     Active Substance: RABEPRAZOLE

REACTIONS (1)
  - Renal cell carcinoma [Not Recovered/Not Resolved]

NARRATIVE: CASE EVENT DATE: 20190915
